FAERS Safety Report 8932586 (Version 1)
Quarter: 2012Q4

REPORT INFORMATION
  Report Type: 
  Country: US (occurrence: US)
  Receive Date: 20121129
  Receipt Date: 20121129
  Transmission Date: 20130627
  Serious: No
  Sender: FDA-Public Use
  Company Number: US-PFIZER INC-2012295090

PATIENT
  Age: 25 Year
  Sex: Male
  Weight: 82.54 kg

DRUGS (1)
  1. VIAGRA [Suspect]
     Indication: ERECTILE DYSFUNCTION
     Dosage: 5 tablets and 1 hour later 10 more tablets
     Route: 048
     Dates: start: 20121123, end: 20121123

REACTIONS (4)
  - Intentional overdose [Unknown]
  - Genital rash [Not Recovered/Not Resolved]
  - Testicular pain [Not Recovered/Not Resolved]
  - Abdominal pain upper [Not Recovered/Not Resolved]
